FAERS Safety Report 8932096 (Version 2)
Quarter: 2015Q1

REPORT INFORMATION
  Report Type: Spontaneous
  Country: FR (occurrence: FR)
  Receive Date: 20121128
  Receipt Date: 20150113
  Transmission Date: 20150721
  Serious: Yes (Hospitalization)
  Sender: FDA-Public Use
  Company Number: FR-ASTRAZENECA-2012SE89224

PATIENT
  Age: 792 Month
  Sex: Male

DRUGS (9)
  1. LOXEN [Suspect]
     Active Substance: NICARDIPINE HYDROCHLORIDE
     Route: 048
     Dates: end: 20121012
  2. NEORAL [Concomitant]
     Active Substance: CYCLOSPORINE
  3. INEXIUM [Suspect]
     Active Substance: ESOMEPRAZOLE
     Dosage: DAILY
     Route: 048
     Dates: start: 20120727, end: 20121025
  4. TEMERIT [Suspect]
     Active Substance: NEBIVOLOL
     Dosage: DAILY
     Route: 048
     Dates: end: 20121012
  5. CELLCEPT [Concomitant]
     Active Substance: MYCOPHENOLATE MOFETIL\MYCOPHENOLATE MOFETIL HYDROCHLORIDE
  6. KEPPRA [Concomitant]
     Active Substance: LEVETIRACETAM
  7. LASILIX [Concomitant]
     Active Substance: FUROSEMIDE
  8. EUPRESSYL [Suspect]
     Active Substance: URAPIDIL
     Dosage: DAILY
     Route: 048
     Dates: end: 20121012
  9. PARACETAMOL [Concomitant]
     Active Substance: ACETAMINOPHEN

REACTIONS (2)
  - Tubulointerstitial nephritis [Recovering/Resolving]
  - Acute kidney injury [Recovering/Resolving]

NARRATIVE: CASE EVENT DATE: 201209
